FAERS Safety Report 10162122 (Version 1)
Quarter: 2014Q2

REPORT INFORMATION
  Report Type: Report from Study
  Country: FR (occurrence: FR)
  Receive Date: 20140509
  Receipt Date: 20140509
  Transmission Date: 20141212
  Serious: Yes (Hospitalization)
  Sender: FDA-Public Use
  Company Number: FR-SA-2014SA056683

PATIENT
  Age: 62 Year
  Sex: Male
  Weight: 87 kg

DRUGS (5)
  1. JEVTANA [Suspect]
     Indication: PROSTATE CANCER
     Route: 042
     Dates: start: 20131202
  2. STUDY MEDICATION NOT GIVEN [Suspect]
     Indication: PRODUCT USED FOR UNKNOWN INDICATION
     Route: 065
  3. NEORECORMON [Concomitant]
     Indication: ANAEMIA
     Dosage: FREQUENCY: 1 IN 2 WEEKS
     Route: 058
     Dates: start: 20140407
  4. DUROGESIC [Concomitant]
     Indication: CANCER PAIN
     Dates: start: 20140325
  5. ACUPAN [Concomitant]
     Indication: CANCER PAIN
     Route: 030
     Dates: start: 20140407

REACTIONS (1)
  - Brain oedema [Recovering/Resolving]
